FAERS Safety Report 9196492 (Version 1)
Quarter: 2013Q1

REPORT INFORMATION
  Report Type: Spontaneous
  Country: US (occurrence: None)
  Receive Date: 20120709
  Receipt Date: 20120709
  Transmission Date: 20140127
  Serious: Yes (Other)
  Sender: FDA-Public Use
  Company Number: PHHY2011US52004

PATIENT
  Sex: Female

DRUGS (15)
  1. GLEEVEC [Suspect]
     Route: 048
  2. AMBIEN [Concomitant]
  3. LASIX [Concomitant]
  4. MAALOX [Concomitant]
  5. K-DUR [Concomitant]
  6. REGLAN [Concomitant]
  7. SUCRALFATE [Concomitant]
  8. TUMS [Concomitant]
  9. VALIUM [Concomitant]
  10. ZOFRAN [Concomitant]
  11. PRILOSEC [Concomitant]
  12. NEXIUM [Concomitant]
  13. COLACE [Concomitant]
  14. MULTIVITAMINS [Concomitant]
  15. DONNATAL [Concomitant]

REACTIONS (5)
  - Gastritis erosive [None]
  - Gastric ulcer [None]
  - Abdominal pain [None]
  - Nausea [None]
  - Gastrointestinal haemorrhage [None]
